APPROVED DRUG PRODUCT: CLOFARABINE
Active Ingredient: CLOFARABINE
Strength: 20MG/20ML (1MG/ML)
Dosage Form/Route: SOLUTION;INTRAVENOUS
Application: A204029 | Product #001
Applicant: ABON PHARMACEUTICALS LLC
Approved: May 9, 2017 | RLD: No | RS: No | Type: DISCN